FAERS Safety Report 15237485 (Version 2)
Quarter: 2018Q3

REPORT INFORMATION
  Report Type: Report from Study
  Country: DE (occurrence: DE)
  Receive Date: 20180803
  Receipt Date: 20180902
  Transmission Date: 20181010
  Serious: Yes (Death, Hospitalization)
  Sender: FDA-Public Use
  Company Number: PHHY2018DE056243

PATIENT
  Age: 37 Year
  Sex: Male

DRUGS (1)
  1. FARYDAK [Suspect]
     Active Substance: PANOBINOSTAT
     Indication: PLASMA CELL MYELOMA
     Dosage: 20 MG, UNK (D1, D3, D5, D8, D10 AND D12)
     Route: 048
     Dates: start: 20180615, end: 20180618

REACTIONS (4)
  - Dyspnoea [Unknown]
  - Malignant neoplasm progression [Unknown]
  - Plasma cell myeloma [Unknown]
  - General physical health deterioration [Fatal]

NARRATIVE: CASE EVENT DATE: 20180615
